FAERS Safety Report 12061797 (Version 1)
Quarter: 2016Q1

REPORT INFORMATION
  Report Type: Spontaneous
  Country: None (occurrence: US)
  Receive Date: 20160210
  Receipt Date: 20160210
  Transmission Date: 20160526
  Serious: No
  Sender: FDA-Public Use
  Company Number: US-ALLERGAN-1500491US

PATIENT
  Age: 43 Year
  Sex: Female

DRUGS (2)
  1. BUTTERBUR [Concomitant]
     Indication: MIGRAINE
     Dosage: UNK
  2. BOTOX [Suspect]
     Active Substance: ONABOTULINUMTOXINA
     Indication: MIGRAINE
     Dosage: 25 UNITS, SINGLE
     Route: 030
     Dates: start: 20141202, end: 20141202

REACTIONS (3)
  - Eyelid ptosis [Unknown]
  - Injection site reaction [Unknown]
  - Ocular hyperaemia [Unknown]
